FAERS Safety Report 8468484-X (Version None)
Quarter: 2012Q2

REPORT INFORMATION
  Report Type: 
  Country: None (occurrence: None)
  Receive Date: 20120626
  Receipt Date: 20120612
  Transmission Date: 20120825
  Serious: Yes (Other)
  Sender: FDA-Public Use
  Company Number: US-ROCHE-1077670

PATIENT
  Sex: Female

DRUGS (4)
  1. COPEGUS [Suspect]
     Indication: HEPATITIS C
     Route: 065
     Dates: start: 20110301, end: 20110401
  2. PEGASYS [Suspect]
     Route: 065
     Dates: start: 20120330
  3. COPEGUS [Suspect]
     Route: 065
     Dates: start: 20120330
  4. PEGASYS [Suspect]
     Indication: HEPATITIS C
     Route: 065
     Dates: start: 20110301, end: 20110401

REACTIONS (3)
  - MEMORY IMPAIRMENT [None]
  - ALCOHOL USE [None]
  - SUICIDE ATTEMPT [None]
